FAERS Safety Report 13926813 (Version 1)
Quarter: 2017Q3

REPORT INFORMATION
  Report Type: Report from Study
  Country: US (occurrence: US)
  Receive Date: 20170901
  Receipt Date: 20170901
  Transmission Date: 20171127
  Serious: Yes (Other)
  Sender: FDA-Public Use
  Company Number: US-AMGEN-USASL2017130505

PATIENT
  Sex: Female

DRUGS (3)
  1. RITUXAN [Concomitant]
     Active Substance: RITUXIMAB
  2. NPLATE [Suspect]
     Active Substance: ROMIPLOSTIM
     Indication: IMMUNE THROMBOCYTOPENIC PURPURA
     Dosage: UNK
     Route: 065
  3. IMMUNOGLOBULIN (IMMUNOGLOBULIN HUMAN NORMAL) [Concomitant]
     Active Substance: HUMAN IMMUNOGLOBULIN G
     Route: 042

REACTIONS (2)
  - Colon cancer [Unknown]
  - Platelet count decreased [Unknown]
